FAERS Safety Report 20459875 (Version 1)
Quarter: 2022Q1

REPORT INFORMATION
  Report Type: Other
  Country: US (occurrence: None)
  Receive Date: 20220211
  Receipt Date: 20220211
  Transmission Date: 20220423
  Serious: Yes (Other)
  Sender: FDA-Public Use
  Company Number: US-ROCHE-2695487

PATIENT

DRUGS (6)
  1. BEVACIZUMAB [Suspect]
     Active Substance: BEVACIZUMAB
     Indication: Colorectal cancer metastatic
     Dosage: DAY 1 OF 14 DAY CYCLE.
     Route: 065
  2. IRINOTECAN [Suspect]
     Active Substance: IRINOTECAN
     Indication: Colorectal cancer metastatic
     Route: 065
  3. LEUCOVORIN [Suspect]
     Active Substance: LEUCOVORIN
     Indication: Colorectal cancer metastatic
     Route: 065
  4. FLUOROURACIL [Suspect]
     Active Substance: FLUOROURACIL
     Indication: Colorectal cancer metastatic
     Route: 065
  5. FLUOROURACIL [Suspect]
     Active Substance: FLUOROURACIL
     Route: 042
  6. ONVANSERTIB [Suspect]
     Active Substance: ONVANSERTIB
     Indication: Colorectal cancer metastatic
     Dosage: DAY 1 THROUGH 5 EVERY 14-DAYS OVER TWO TREATMENT COURSES (1 CYCLE)
     Route: 048

REACTIONS (16)
  - Neutropenia [Unknown]
  - Fatigue [Unknown]
  - Nausea [Unknown]
  - Diarrhoea [Unknown]
  - Abdominal pain [Unknown]
  - Mucosal inflammation [Unknown]
  - White blood cell count decreased [Unknown]
  - Platelet count decreased [Unknown]
  - Hypertension [Unknown]
  - Anaemia [Unknown]
  - Vomiting [Unknown]
  - Infection [Unknown]
  - Haemorrhage [Unknown]
  - Alanine aminotransferase increased [Unknown]
  - Febrile neutropenia [Unknown]
  - Hyperphosphataemia [Unknown]
